FAERS Safety Report 5096864-1 (Version None)
Quarter: 2006Q3

REPORT INFORMATION
  Report Type: 
  Country: None (occurrence: None)
  Receive Date: 20060901
  Receipt Date: 20060901
  Transmission Date: 20061208
  Serious: Yes (Hospitalization)
  Sender: FDA-Public Use
  Company Number: None

PATIENT
  Sex: Female
  Weight: 15 kg

DRUGS (7)
  1. CYTARABINE [Suspect]
     Dosage: 800 MG
  2. CYCLOPHOSPHAMIDE [Suspect]
     Dosage: 1320 MG
  3. MERCAPTOPURINE [Suspect]
     Dosage: 1200 MG
  4. METHOTREXATE [Suspect]
     Dosage: 48 MG
  5. PEG-L-ASPARAGINASE (K-H) [Suspect]
     Dosage: SEE IMAGE
  6. VINCRISTINE SULFATE [Suspect]
  7. ERWINIA ASPARAGINASE [Concomitant]

REACTIONS (5)
  - DIARRHOEA HAEMORRHAGIC [None]
  - PANCREATITIS ACUTE [None]
  - PERIPANCREATIC FLUID COLLECTION [None]
  - POST PROCEDURAL COMPLICATION [None]
  - URTICARIA GENERALISED [None]
